FAERS Safety Report 19873600 (Version 1)
Quarter: 2021Q3

REPORT INFORMATION
  Report Type: Spontaneous
  Country: US (occurrence: US)
  Receive Date: 20210923
  Receipt Date: 20210923
  Transmission Date: 20211014
  Serious: Yes (Hospitalization)
  Sender: FDA-Public Use
  Company Number: None

PATIENT
  Age: 77 Year
  Sex: Female
  Weight: 70.2 kg

DRUGS (14)
  1. VERZENIO [Suspect]
     Active Substance: ABEMACICLIB
     Indication: BREAST CANCER
     Route: 048
     Dates: start: 20210827
  2. ATENOLOL 25MG [Concomitant]
     Active Substance: ATENOLOL
  3. SERTRALINE [Concomitant]
     Active Substance: SERTRALINE HYDROCHLORIDE
  4. ONE DAILY FOR WOMEN 50+ ADV [Concomitant]
  5. GABAPENTIN 300MG [Concomitant]
     Active Substance: GABAPENTIN
  6. TYLENOL [Concomitant]
     Active Substance: ACETAMINOPHEN
  7. PRAVASTATIN 10MG [Concomitant]
     Active Substance: PRAVASTATIN
  8. TRIAMTERENE?HCTZ 37.5?25MG [Concomitant]
  9. ASPIRIN 81MG [Concomitant]
     Active Substance: ASPIRIN
  10. CALCIUM CARBONATE 600MG [Concomitant]
  11. AMITRIPTYLINE 10MG [Concomitant]
     Active Substance: AMITRIPTYLINE
  12. METFORMIN 500MG [Concomitant]
     Active Substance: METFORMIN HYDROCHLORIDE
  13. LORAZEPAM 0.5MG [Concomitant]
     Active Substance: LORAZEPAM
  14. LETROZOLE 2.5MG [Concomitant]
     Active Substance: LETROZOLE

REACTIONS (2)
  - Therapy interrupted [None]
  - Fall [None]

NARRATIVE: CASE EVENT DATE: 20210923
